FAERS Safety Report 16864718 (Version 1)
Quarter: 2019Q3

REPORT INFORMATION
  Report Type: Spontaneous
  Country: DE (occurrence: DE)
  Receive Date: 20190929
  Receipt Date: 20190929
  Transmission Date: 20191005
  Serious: Yes (Other)
  Sender: FDA-Public Use
  Company Number: PHHY2019DE225445

PATIENT

DRUGS (1)
  1. LETROZOLE. [Suspect]
     Active Substance: LETROZOLE
     Indication: BREAST CANCER
     Dosage: UNK
     Route: 065
     Dates: start: 201401, end: 201507

REACTIONS (18)
  - Metastases to peritoneum [Unknown]
  - Intestinal congestion [Unknown]
  - Hydronephrosis [Unknown]
  - Carcinoembryonic antigen increased [Unknown]
  - Abdominal neoplasm [Unknown]
  - Gastrointestinal disorder [Unknown]
  - Metastases to lymph nodes [Unknown]
  - Metastases to liver [Unknown]
  - Urinary retention [Unknown]
  - Malignant neoplasm progression [Unknown]
  - Toxoplasmosis [Unknown]
  - Breast cancer [Unknown]
  - Intestinal stenosis [Unknown]
  - Lymphadenitis [Unknown]
  - Tumour marker increased [Unknown]
  - Metastases to bone [Unknown]
  - Malignant peritoneal neoplasm [Unknown]
  - Vomiting [Unknown]

NARRATIVE: CASE EVENT DATE: 201507
